FAERS Safety Report 5237135-X (Version None)
Quarter: 2007Q1

REPORT INFORMATION
  Report Type: 
  Country: None (occurrence: None)
  Receive Date: 20070213
  Receipt Date: 20070208
  Transmission Date: 20070707
  Serious: Yes (Other)
  Sender: FDA-Public Use
  Company Number: BPC-ZN-07-068

PATIENT
  Age: 23 Year
  Sex: Male

DRUGS (1)
  1. ZYBAN [Suspect]
     Dosage: 150MG TWICE PER DAY
     Route: 048
     Dates: start: 20050106, end: 20050111

REACTIONS (2)
  - DEPRESSION [None]
  - FEELING ABNORMAL [None]
